FAERS Safety Report 9706767 (Version 3)
Quarter: 2014Q1

REPORT INFORMATION
  Report Type: Report from Study
  Country: DE (occurrence: DE)
  Receive Date: 20131125
  Receipt Date: 20140110
  Transmission Date: 20141002
  Serious: Yes (Hospitalization)
  Sender: FDA-Public Use
  Company Number: PHHY2013DE134210

PATIENT
  Sex: Female
  Weight: 79 kg

DRUGS (4)
  1. AFINITOR [Suspect]
     Indication: BREAST CANCER METASTATIC
     Dosage: 10 MG, QD
     Route: 048
     Dates: start: 20131024, end: 20131118
  2. AFINITOR [Suspect]
     Dosage: 2.5 MG, QD
     Route: 048
     Dates: start: 20131202, end: 20140102
  3. EXEMESTANE [Concomitant]
     Indication: BREAST CANCER METASTATIC
     Dosage: 25 MG, QD
     Route: 048
     Dates: start: 20120701
  4. ANTIBIOTICS [Concomitant]
     Indication: BONE DISORDER

REACTIONS (6)
  - Renal failure [Recovering/Resolving]
  - Urine output decreased [Recovering/Resolving]
  - Blood creatinine increased [Recovering/Resolving]
  - Diarrhoea [Recovered/Resolved]
  - Transaminases increased [Recovering/Resolving]
  - Tumour marker increased [Unknown]
